FAERS Safety Report 10028085 (Version 4)
Quarter: 2014Q3

REPORT INFORMATION
  Report Type: Report from Study
  Country: US (occurrence: US)
  Receive Date: 20140321
  Receipt Date: 20140702
  Transmission Date: 20150326
  Serious: Yes (Death, Hospitalization)
  Sender: FDA-Public Use
  Company Number: US-ALEXION PHARMACEUTICALS INC.-A201400741

PATIENT

DRUGS (5)
  1. JAKAFI [Concomitant]
     Active Substance: RUXOLITINIB
     Indication: PRODUCT USED FOR UNKNOWN INDICATION
     Dosage: UNK, BID
     Route: 048
     Dates: start: 20140228
  2. THALIDOMIDE [Concomitant]
     Active Substance: THALIDOMIDE
     Indication: MYELOPROLIFERATIVE DISORDER
     Dosage: UNK
     Route: 065
     Dates: start: 20140401
  3. PREDNISONE. [Concomitant]
     Active Substance: PREDNISONE
     Indication: MYELOPROLIFERATIVE DISORDER
     Dosage: UNK
     Route: 065
     Dates: start: 20140401
  4. EXJADE [Concomitant]
     Active Substance: DEFERASIROX
     Indication: PRODUCT USED FOR UNKNOWN INDICATION
     Dosage: UNK
     Route: 065
     Dates: start: 20120229
  5. SOLIRIS [Suspect]
     Active Substance: ECULIZUMAB
     Indication: PAROXYSMAL NOCTURNAL HAEMOGLOBINURIA
     Dosage: 900 MG, Q2W
     Route: 042
     Dates: start: 20111130

REACTIONS (3)
  - Cellulitis [Not Recovered/Not Resolved]
  - Death [Fatal]
  - Haemoglobin decreased [Unknown]

NARRATIVE: CASE EVENT DATE: 20140216
